FAERS Safety Report 19230167 (Version 1)
Quarter: 2021Q2

REPORT INFORMATION
  Report Type: Spontaneous
  Country: US (occurrence: US)
  Receive Date: 20210506
  Receipt Date: 20210506
  Transmission Date: 20210717
  Serious: No
  Sender: FDA-Public Use
  Company Number: US-SA-2021SA136584

PATIENT
  Weight: 1.2 kg

DRUGS (1)
  1. LANTUS SOLOSTAR [Suspect]
     Active Substance: INSULIN GLARGINE
     Indication: NEONATAL DIABETES MELLITUS
     Dosage: UNK UNK, Q12H

REACTIONS (1)
  - Product prescribing issue [Unknown]
